FAERS Safety Report 22389846 (Version 1)
Quarter: 2023Q2

REPORT INFORMATION
  Report Type: Spontaneous
  Country: IN (occurrence: IN)
  Receive Date: 20230531
  Receipt Date: 20230531
  Transmission Date: 20230722
  Serious: Yes (Hospitalization, Other)
  Sender: FDA-Public Use
  Company Number: IN-APIL-2315957US

PATIENT
  Sex: Female
  Weight: 0.5 kg

DRUGS (3)
  1. PROGESTERONE [Suspect]
     Active Substance: PROGESTERONE
     Indication: Exposure during pregnancy
     Dosage: UNK
     Route: 064
  2. IRON [Concomitant]
     Active Substance: IRON
     Route: 064
  3. CALCIUM [Concomitant]
     Active Substance: CALCIUM
     Route: 064

REACTIONS (2)
  - Low birth weight baby [Unknown]
  - Premature baby [Unknown]
